FAERS Safety Report 7093038-X (Version None)
Quarter: 2010Q4

REPORT INFORMATION
  Report Type: 
  Country: None (occurrence: None)
  Receive Date: 20101109
  Receipt Date: 20101109
  Transmission Date: 20110411
  Serious: Yes (Life-Threatening, Hospitalization)
  Sender: FDA-Public Use
  Company Number: None

PATIENT
  Sex: Female
  Weight: 98.8842 kg

DRUGS (1)
  1. OCTAGAM [Suspect]
     Indication: SELECTIVE IGG SUBCLASS DEFICIENCY
     Dosage: 42 GRAMS EVERY 3 WEEKS IV DRIP
     Route: 041
     Dates: start: 20080428, end: 20100911

REACTIONS (2)
  - PRODUCT QUALITY ISSUE [None]
  - PULMONARY THROMBOSIS [None]
